FAERS Safety Report 4405050-7 (Version None)
Quarter: 2004Q3

REPORT INFORMATION
  Report Type: 
  Country: None (occurrence: None)
  Receive Date: 20040715
  Receipt Date: 20040629
  Transmission Date: 20050211
  Serious: Yes (Death)
  Sender: FDA-Public Use
  Company Number: US-JNJFOC-20040702265

PATIENT
  Sex: Male

DRUGS (1)
  1. LEVOFLOXACIN [Suspect]

REACTIONS (1)
  - TORSADE DE POINTES [None]
